FAERS Safety Report 4683533-2 (Version None)
Quarter: 2005Q2

REPORT INFORMATION
  Report Type: 
  Country: None (occurrence: None)
  Receive Date: 20050606
  Receipt Date: 20050606
  Transmission Date: 20051028
  Serious: Yes (Hospitalization)
  Sender: FDA-Public Use
  Company Number: None

PATIENT
  Age: 65 Year
  Sex: Female

DRUGS (14)
  1. PEG INTERFERON ALFA [Suspect]
     Indication: DISEASE RECURRENCE
     Dates: start: 20050401, end: 20050513
  2. PEG INTERFERON ALFA [Suspect]
     Indication: HEPATITIS C
     Dates: start: 20050401, end: 20050513
  3. SYNTHROID [Concomitant]
  4. PREVACID [Concomitant]
  5. INDERAL [Concomitant]
  6. PROGRAF [Concomitant]
  7. FLAGYL [Concomitant]
  8. HYDRALAZINE [Concomitant]
  9. LEXAPRO [Concomitant]
  10. COLACE [Concomitant]
  11. PHENERGAN [Concomitant]
  12. OXYCODONE HCL [Concomitant]
  13. ASPIRIN [Concomitant]
  14. PLAVIX [Concomitant]

REACTIONS (2)
  - DYSPHAGIA [None]
  - MYOPATHY [None]
